FAERS Safety Report 8214173-6 (Version None)
Quarter: 2012Q1

REPORT INFORMATION
  Report Type: 
  Country: None (occurrence: None)
  Receive Date: 20120316
  Receipt Date: 20120313
  Transmission Date: 20120608
  Serious: Yes (Hospitalization)
  Sender: FDA-Public Use
  Company Number: US-PFIZER INC-2012066637

PATIENT
  Sex: Male
  Weight: 71.202 kg

DRUGS (2)
  1. VIAGRA [Suspect]
     Indication: ERECTILE DYSFUNCTION
     Dosage: 100 MG, AS NEEDED
  2. NORVASC [Concomitant]
     Indication: HYPERTENSION
     Dosage: 10 MG, 2X/DAY

REACTIONS (1)
  - LIVER DISORDER [None]
